FAERS Safety Report 8269817-X (Version None)
Quarter: 2012Q2

REPORT INFORMATION
  Report Type: 
  Country: None (occurrence: None)
  Receive Date: 20120410
  Receipt Date: 20120329
  Transmission Date: 20120825
  Serious: Yes (Other)
  Sender: FDA-Public Use
  Company Number: US-SANOFI-AVENTIS-2010SA049526

PATIENT
  Sex: Female

DRUGS (10)
  1. AMARYL [Suspect]
     Route: 048
  2. OXYGEN [Concomitant]
     Indication: CHRONIC OBSTRUCTIVE PULMONARY DISEASE
  3. SOLOSTAR [Suspect]
     Dates: start: 20050101
  4. APIDRA [Suspect]
     Dosage: 14-16 UNITS TID
     Route: 058
  5. LANTUS [Suspect]
     Dosage: DOSE:10 UNIT(S)
     Route: 058
     Dates: start: 20050901
  6. LANTUS [Suspect]
     Dosage: DOSE:42 UNIT(S)
     Route: 058
  7. OPTICLICK [Suspect]
  8. OXYGEN [Concomitant]
     Indication: ASTHMA
  9. LANTUS [Suspect]
     Dosage: DOSE:45 UNIT(S)
     Route: 058
  10. APIDRA [Suspect]
     Dosage: 8 - 14 UNITS TID
     Route: 058
     Dates: start: 20060101

REACTIONS (6)
  - ARTHRITIS [None]
  - MACULAR OEDEMA [None]
  - SOMNOLENCE [None]
  - BLOOD GLUCOSE INCREASED [None]
  - VISUAL IMPAIRMENT [None]
  - HYPOGLYCAEMIA [None]
